FAERS Safety Report 8103717-0 (Version None)
Quarter: 2012Q1

REPORT INFORMATION
  Report Type: 
  Country: None (occurrence: None)
  Receive Date: 20120201
  Receipt Date: 20120130
  Transmission Date: 20120608
  Serious: Yes (Death, Life-Threatening, Hospitalization, Disabling, Other)
  Sender: FDA-Public Use
  Company Number: DE-PFIZER INC-2010152372

PATIENT
  Age: 80 Year
  Sex: Male
  Weight: 120 kg

DRUGS (7)
  1. METOPROLOL TARTRATE AND HYDROCHLOROTHIAZIDE [Concomitant]
  2. ACETYLSALICYLIC ACID [Concomitant]
  3. ISOSORBIDE DINITRATE [Concomitant]
     Dosage: UNK
  4. FUROSEMIDE [Concomitant]
     Dosage: UNK
  5. GLIMEPIRIDE [Concomitant]
     Dosage: UNK
  6. RAMIPRIL [Suspect]
     Indication: HYPERTENSION
     Dosage: 5 MG, UNK
     Route: 048
     Dates: start: 20101029
  7. DIGITOXIN [Concomitant]
     Dosage: UNK

REACTIONS (8)
  - TONGUE OEDEMA [None]
  - RESPIRATORY TRACT OEDEMA [None]
  - ANGIOEDEMA [None]
  - HYPOXIC-ISCHAEMIC ENCEPHALOPATHY [None]
  - DYSPNOEA [None]
  - ASPHYXIA [None]
  - OBSTRUCTIVE AIRWAYS DISORDER [None]
  - PHARYNGEAL OEDEMA [None]
